FAERS Safety Report 26037647 (Version 1)
Quarter: 2025Q4

REPORT INFORMATION
  Report Type: Spontaneous
  Country: EU (occurrence: EU)
  Receive Date: 20251112
  Receipt Date: 20251112
  Transmission Date: 20260118
  Serious: Yes (Life-Threatening)
  Sender: TEVA
  Company Number: None

PATIENT
  Age: 78 Year
  Sex: Female
  Weight: 43 kg

DRUGS (3)
  1. FLUOROURACIL [Suspect]
     Active Substance: FLUOROURACIL
     Indication: Transitional cell carcinoma
     Dosage: TIME INTERVAL: CYCLICAL: C1
     Route: 042
     Dates: start: 20250923, end: 20250928
  2. FLUOROURACIL [Suspect]
     Active Substance: FLUOROURACIL
     Indication: Transitional cell carcinoma
     Dosage: TIME INTERVAL: CYCLICAL: C2
     Route: 042
     Dates: start: 20251015, end: 20251017
  3. MITOMYCIN [Concomitant]
     Active Substance: MITOMYCIN
     Indication: Transitional cell carcinoma
     Dosage: TIME INTERVAL: TOTAL
     Route: 042
     Dates: start: 20250923, end: 20250923

REACTIONS (1)
  - Aortic dissection [Recovering/Resolving]

NARRATIVE: CASE EVENT DATE: 20251017
